FAERS Safety Report 21273635 (Version 10)
Quarter: 2024Q4

REPORT INFORMATION
  Report Type: Spontaneous
  Country: US (occurrence: US)
  Receive Date: 20220831
  Receipt Date: 20241031
  Transmission Date: 20250115
  Serious: Yes (Other)
  Sender: PFIZER
  Company Number: US-PFIZER INC-202200821498

PATIENT
  Age: 79 Year
  Sex: Female

DRUGS (3)
  1. IBRANCE [Suspect]
     Active Substance: PALBOCICLIB
     Indication: Uterine cancer
     Dosage: 125 MG
     Route: 048
  2. IBRANCE [Suspect]
     Active Substance: PALBOCICLIB
     Indication: Breast cancer metastatic
     Dosage: 1 TABLET ONCE DAILY FOR 21 DAYS (3WEEKS) FOLLOWED BY 7 DAYS OFF TREATMENT
     Route: 048
  3. IBRANCE [Suspect]
     Active Substance: PALBOCICLIB
     Dosage: 75 MG

REACTIONS (7)
  - Renal impairment [Unknown]
  - Iron deficiency anaemia [Unknown]
  - Pancytopenia [Unknown]
  - White blood cell count abnormal [Unknown]
  - Confusional state [Unknown]
  - Alopecia [Not Recovered/Not Resolved]
  - Laboratory test abnormal [Unknown]
